FAERS Safety Report 5133780-0 (Version None)
Quarter: 2006Q4

REPORT INFORMATION
  Report Type: 
  Country: None (occurrence: None)
  Receive Date: 20061024
  Receipt Date: 20060526
  Transmission Date: 20070319
  Serious: Yes (Death)
  Sender: FDA-Public Use
  Company Number: CA-ELI_LILLY_AND_COMPANY-CA200605006259

PATIENT
  Age: 36 Year
  Sex: Female

DRUGS (2)
  1. HUMALOG [Suspect]
     Dosage: UNK, UNK
  2. HUMULIN N [Suspect]
     Dosage: 22 U, EACH EVENING

REACTIONS (4)
  - ACCIDENTAL OVERDOSE [None]
  - HYPOGLYCAEMIA [None]
  - MEDICATION ERROR [None]
  - WRONG DRUG ADMINISTERED [None]
